FAERS Safety Report 6676582-6 (Version None)
Quarter: 2010Q2

REPORT INFORMATION
  Report Type: 
  Country: None (occurrence: None)
  Receive Date: 20100412
  Receipt Date: 20100402
  Transmission Date: 20101027
  Serious: Yes (Hospitalization)
  Sender: FDA-Public Use
  Company Number: US-ABBOTT-10P-163-0636368-00

PATIENT
  Age: 14 Year
  Sex: Female

DRUGS (4)
  1. VALPROATE SODIUM [Suspect]
     Indication: EPILEPSY
     Route: 065
  2. CARBAMAZEPINE [Suspect]
     Indication: EPILEPSY
     Route: 065
  3. PHENOBARBITAL TAB [Suspect]
     Indication: EPILEPSY
     Route: 065
  4. ZONISAMIDE [Concomitant]
     Indication: DRUG USE FOR UNKNOWN INDICATION

REACTIONS (12)
  - ACNE [None]
  - ALOPECIA [None]
  - ASCITES [None]
  - CYSTITIS [None]
  - HAIR DISORDER [None]
  - HIRSUTISM [None]
  - INTESTINAL OBSTRUCTION [None]
  - OVARIAN GRANULOSA-THECA CELL TUMOUR [None]
  - PANCREATITIS [None]
  - PELVIC MASS [None]
  - PERITONITIS SCLEROSING [None]
  - RESPIRATORY DISTRESS [None]
